FAERS Safety Report 21772178 (Version 1)
Quarter: 2022Q4

REPORT INFORMATION
  Report Type: Spontaneous
  Country: CN (occurrence: CN)
  Receive Date: 20221223
  Receipt Date: 20221223
  Transmission Date: 20230112
  Serious: Yes (Other)
  Sender: FDA-Public Use
  Company Number: CN-002147023-NVSC2022CN294189

PATIENT
  Age: 71 Year
  Sex: Female
  Weight: 60 kg

DRUGS (2)
  1. AMLODIPINE\VALSARTAN [Suspect]
     Active Substance: AMLODIPINE\VALSARTAN
     Indication: Coronary artery disease
     Dosage: 1 DOSAGE FORM, QD
     Route: 048
     Dates: start: 20220902, end: 20221216
  2. PITAVASTATIN CALCIUM [Suspect]
     Active Substance: PITAVASTATIN CALCIUM
     Indication: Coronary artery disease
     Dosage: 2 MG, QD
     Route: 048
     Dates: start: 20220902, end: 20221216

REACTIONS (1)
  - Abnormal faeces [Unknown]

NARRATIVE: CASE EVENT DATE: 20221122
